FAERS Safety Report 20016871 (Version 1)
Quarter: 2021Q4

REPORT INFORMATION
  Report Type: Spontaneous
  Country: US (occurrence: None)
  Receive Date: 20211104
  Receipt Date: 20211104
  Transmission Date: 20220303
  Serious: Yes (Hospitalization)
  Sender: FDA-Public Use
  Company Number: None

PATIENT
  Sex: Male

DRUGS (10)
  1. MAVENCLAD [Suspect]
     Active Substance: CLADRIBINE
     Indication: Multiple sclerosis
     Route: 048
     Dates: start: 20211012
  2. BACLOFEN [Concomitant]
     Active Substance: BACLOFEN
  3. CLONAZEPAM [Concomitant]
     Active Substance: CLONAZEPAM
  4. DALFAMRIDIN ER [Concomitant]
  5. METHENAM HIP [Concomitant]
  6. OCREVUS [Concomitant]
     Active Substance: OCRELIZUMAB
  7. PREDNISONE [Concomitant]
     Active Substance: PREDNISONE
  8. TAMSULOSIN [Concomitant]
     Active Substance: TAMSULOSIN
  9. TIZANIDINE [Concomitant]
     Active Substance: TIZANIDINE
  10. VITAMIN D [Concomitant]
     Active Substance: VITAMIN D NOS

REACTIONS (3)
  - Urinary tract infection [None]
  - Sepsis [None]
  - Stiff leg syndrome [None]
